FAERS Safety Report 10188070 (Version 1)
Quarter: 2014Q2

REPORT INFORMATION
  Report Type: Spontaneous
  Country: GB (occurrence: GB)
  Receive Date: 20140522
  Receipt Date: 20140522
  Transmission Date: 20141212
  Serious: Yes (Hospitalization)
  Sender: FDA-Public Use
  Company Number: GB-TEVA-481090ISR

PATIENT
  Sex: Female

DRUGS (2)
  1. TIZANIDINE [Suspect]
     Indication: PRODUCT USED FOR UNKNOWN INDICATION
     Dosage: HAS TAKEN UP TO 12 TABLETS A DAY FOR A FEW DAYS
  2. TIZANIDINE [Suspect]
     Dates: start: 2014

REACTIONS (3)
  - Pneumonia [Unknown]
  - Somnolence [Unknown]
  - Somnolence [Unknown]
